FAERS Safety Report 10144931 (Version 2)
Quarter: 2015Q2

REPORT INFORMATION
  Report Type: Spontaneous
  Country: US (occurrence: US)
  Receive Date: 20140430
  Receipt Date: 20150415
  Transmission Date: 20150821
  Serious: No
  Sender: FDA-Public Use
  Company Number: US-SA-2014SA024867

PATIENT
  Sex: Male
  Weight: 68.03 kg

DRUGS (11)
  1. PANTHENOL/RETINOL/THIAMINE HYDROCHLORIDE/ASCORBIC ACID/ERGOCALCIFEROL/FOLIC ACID/RIBOFLAVIN/NICOTINA [Concomitant]
  2. SUTENT [Suspect]
     Active Substance: SUNITINIB MALATE
     Indication: PRODUCT USED FOR UNKNOWN INDICATION
     Route: 065
     Dates: start: 20140121
  3. LEVOTHYROXINE [Concomitant]
     Active Substance: LEVOTHYROXINE
  4. DEMEROL [Suspect]
     Active Substance: MEPERIDINE HYDROCHLORIDE
     Indication: PRODUCT USED FOR UNKNOWN INDICATION
     Route: 048
  5. SUTENT [Suspect]
     Active Substance: SUNITINIB MALATE
     Indication: PRODUCT USED FOR UNKNOWN INDICATION
     Route: 065
     Dates: start: 20130906
  6. SUTENT [Suspect]
     Active Substance: SUNITINIB MALATE
     Indication: PRODUCT USED FOR UNKNOWN INDICATION
     Route: 065
     Dates: start: 20131018
  7. SUTENT [Suspect]
     Active Substance: SUNITINIB MALATE
     Indication: PRODUCT USED FOR UNKNOWN INDICATION
     Route: 065
     Dates: start: 20140312
  8. LISINOPRIL. [Concomitant]
     Active Substance: LISINOPRIL
  9. HYDROCHLOROTHIAZIDE. [Concomitant]
     Active Substance: HYDROCHLOROTHIAZIDE
  10. BARACLUDE [Concomitant]
     Active Substance: ENTECAVIR
  11. CALCIUM [Concomitant]
     Active Substance: CALCIUM

REACTIONS (2)
  - Hypersensitivity [Unknown]
  - Platelet count decreased [Unknown]
